FAERS Safety Report 21191936 (Version 3)
Quarter: 2022Q3

REPORT INFORMATION
  Report Type: Spontaneous
  Country: JP (occurrence: JP)
  Receive Date: 20220809
  Receipt Date: 20220816
  Transmission Date: 20221027
  Serious: Yes (Hospitalization, Other)
  Sender: FDA-Public Use
  Company Number: JP-UCBSA-2022046147

PATIENT
  Age: 36 Year
  Sex: Female

DRUGS (1)
  1. LEVETIRACETAM [Suspect]
     Active Substance: LEVETIRACETAM
     Indication: Epilepsy
     Dosage: UNK
     Route: 048

REACTIONS (5)
  - Bradycardia [Unknown]
  - Premature rupture of membranes [Unknown]
  - Forceps delivery [Unknown]
  - Perineal injury [Unknown]
  - Maternal exposure during pregnancy [Unknown]
